FAERS Safety Report 9221505 (Version 1)
Quarter: 2013Q1

REPORT INFORMATION
  Report Type: Spontaneous
  Country: US (occurrence: None)
  Receive Date: 20120831
  Receipt Date: 20120831
  Transmission Date: 20140127
  Serious: No
  Sender: FDA-Public Use
  Company Number: 1000029748

PATIENT
  Age: 65 Year
  Sex: Female

DRUGS (10)
  1. DALIRESP [Suspect]
     Indication: CHRONIC OBSTRUCTIVE PULMONARY DISEASE
     Route: 048
     Dates: start: 20120407
  2. PREDNISONE (PREDNISONE) (PREDNISONE) [Concomitant]
  3. LESCOL (FLUVASTATIN SODIUM) (FLUVASTATIN SODIUM) [Concomitant]
  4. REMERON (MIRTAZAPINE) (MIRTAZAPINE) [Concomitant]
  5. LEXAPRO (ESCITALOPRAM OXALATE) (ESCITALOPRAM OXALATE) [Concomitant]
  6. DILTIAZEM (DILTIAZEM HYDROCHLORIDE) (DILTIAZEM HYDROCHLORIDE) [Concomitant]
  7. THEOPHYLLINE (THEOPHYLLINE) (THEOPHYLLINE) [Concomitant]
  8. XANAX (ALPRAZOLAM) (ALPRAZOLAM) [Concomitant]
  9. PANTOPRAZOLE (PANTOPRAZOLE) (PANTOPRAZOLE) [Concomitant]
  10. HYDROCHLOROTHIAZIDE (HYDROCHLOROTHIAZIDE) (HYDROCHLOROTHIAZIDE) [Concomitant]

REACTIONS (3)
  - Nausea [None]
  - Headache [None]
  - Decreased appetite [None]
